FAERS Safety Report 7082763-2 (Version None)
Quarter: 2010Q4

REPORT INFORMATION
  Report Type: 
  Country: None (occurrence: None)
  Receive Date: 20101104
  Receipt Date: 20101028
  Transmission Date: 20110411
  Serious: Yes (Other)
  Sender: FDA-Public Use
  Company Number: IT-BRISTOL-MYERS SQUIBB COMPANY-15269913

PATIENT
  Age: 65 Year
  Sex: Male

DRUGS (11)
  1. COUMADIN [Suspect]
     Indication: ATRIAL FIBRILLATION
     Dosage: 50MG/WK UNK-29JUL10
     Dates: start: 20021217, end: 20100916
  2. IBRUPROFEN [Suspect]
     Indication: RIB FRACTURE
     Dosage: BRUFEN 400MG ORAL TABS
     Route: 048
     Dates: start: 20100611, end: 20100729
  3. NORVASC [Concomitant]
     Dosage: TABS
     Route: 048
  4. TAREG [Concomitant]
     Dosage: CAPS AND TABS
     Route: 048
  5. LOPRESSOR [Concomitant]
     Dosage: 100MG FILM COATED ORAL TABS
     Route: 048
  6. LASIX [Concomitant]
     Dosage: 25MG ORAL TABS
     Route: 048
  7. GABAPENTIN [Concomitant]
     Dosage: 400MG ORAL CAPS
     Route: 048
  8. TORVAST [Concomitant]
     Dosage: TABS
     Route: 048
  9. ESKIM [Concomitant]
     Dosage: 1000 MG ORAL SOFT CAPS
     Route: 048
  10. LANSOPRAZOLE [Concomitant]
     Dosage: 15MG ORAL CAPS
     Route: 048
  11. BEROCCA C [Concomitant]
     Dosage: 1DF=1TAB/DAY UNK-11SEP10
     Dates: end: 20100911

REACTIONS (2)
  - INTERNATIONAL NORMALISED RATIO INCREASED [None]
  - RIB FRACTURE [None]
